FAERS Safety Report 19847686 (Version 2)
Quarter: 2021Q4

REPORT INFORMATION
  Report Type: Report from Study
  Country: FR (occurrence: FR)
  Receive Date: 20210917
  Receipt Date: 20211028
  Transmission Date: 20220303
  Serious: Yes (Hospitalization, Other)
  Sender: FDA-Public Use
  Company Number: FR-SERVIER-S20003523

PATIENT

DRUGS (7)
  1. PEGASPARGASE [Suspect]
     Active Substance: PEGASPARGASE
     Indication: Acute lymphocytic leukaemia
     Dosage: 2775 IU, QD,  D12
     Route: 042
     Dates: start: 20200327, end: 20200327
  2. VINCRISTINE SULFATE [Suspect]
     Active Substance: VINCRISTINE SULFATE
     Indication: Acute lymphocytic leukaemia
     Dosage: 1.6 MG, D8,D15,D22, D29
     Route: 042
     Dates: start: 20200323, end: 20200413
  3. DAUNORUBICIN [Suspect]
     Active Substance: DAUNORUBICIN
     Indication: Acute lymphocytic leukaemia
     Dosage: 33 MG, D 18, D15, D22, D29
     Route: 042
     Dates: start: 20200323, end: 20200413
  4. METHOTREXATE [Suspect]
     Active Substance: METHOTREXATE
     Indication: Acute lymphocytic leukaemia
     Dosage: 15 MG, D9, D13, D18 AND D24
     Route: 037
     Dates: start: 20200324, end: 20200410
  5. HYDROCORTISONE [Suspect]
     Active Substance: HYDROCORTISONE
     Indication: Acute lymphocytic leukaemia
     Dosage: 15 MG, D8, D13, D18 AND D24
     Route: 037
     Dates: start: 20200323, end: 20200410
  6. CYTARABINE [Suspect]
     Active Substance: CYTARABINE
     Indication: Acute lymphocytic leukaemia
     Dosage: 30 MG, D8, D13, D18 AND D24
     Route: 037
     Dates: start: 20200323, end: 20200410
  7. PREDNISOLONE [Suspect]
     Active Substance: PREDNISOLONE
     Indication: Acute lymphocytic leukaemia
     Dosage: 70 MG, D8 TO D28
     Route: 048
     Dates: start: 20200323, end: 20200410

REACTIONS (6)
  - Hyponatraemia [Recovered/Resolved]
  - Gastritis [Recovered/Resolved]
  - Hypofibrinogenaemia [Recovered/Resolved]
  - Herpes virus infection [Recovered/Resolved]
  - Weight decreased [Recovered/Resolved]
  - Hyperbilirubinaemia [Recovered/Resolved]

NARRATIVE: CASE EVENT DATE: 20200403
